FAERS Safety Report 6341910-8 (Version None)
Quarter: 2009Q3

REPORT INFORMATION
  Report Type: 
  Country: None (occurrence: None)
  Receive Date: 20090904
  Receipt Date: 20090826
  Transmission Date: 20100115
  Serious: Yes (Other)
  Sender: FDA-Public Use
  Company Number: PHHO2009GB09988

PATIENT
  Sex: Male

DRUGS (4)
  1. PROLEUKIN [Suspect]
     Indication: OESOPHAGEAL ADENOCARCINOMA METASTATIC
     Dosage: UNK
     Route: 042
     Dates: start: 20090721, end: 20090722
  2. FLUDARABINE PHOSPHATE [Concomitant]
  3. FLUCONAZOLE [Concomitant]
  4. SEPTRIN [Concomitant]

REACTIONS (10)
  - ABDOMINAL DISTENSION [None]
  - ABNORMAL CLOTTING FACTOR [None]
  - BLOOD BILIRUBIN INCREASED [None]
  - FIBRIN D DIMER INCREASED [None]
  - HYPOTENSION [None]
  - OXYGEN SATURATION DECREASED [None]
  - PYREXIA [None]
  - RESPIRATORY RATE INCREASED [None]
  - SPLENOMEGALY [None]
  - TACHYCARDIA [None]
